FAERS Safety Report 4304097-9 (Version None)
Quarter: 2004Q1

REPORT INFORMATION
  Report Type: 
  Country: None (occurrence: None)
  Receive Date: 20040223
  Receipt Date: 20031211
  Transmission Date: 20041129
  Serious: No
  Sender: FDA-Public Use
  Company Number: PHEH2003US11403

PATIENT
  Age: 41 Year
  Sex: Female

DRUGS (1)
  1. ZELNORM [Suspect]
     Dosage: 6 MG, BID, ORAL; 6 MG, QD, UNK
     Route: 048
     Dates: start: 20031031, end: 20031211

REACTIONS (2)
  - HEART RATE INCREASED [None]
  - PALPITATIONS [None]
